FAERS Safety Report 6033839-X (Version None)
Quarter: 2009Q1

REPORT INFORMATION
  Report Type: 
  Country: None (occurrence: None)
  Receive Date: 20090108
  Receipt Date: 20081223
  Transmission Date: 20090719
  Serious: Yes (Death)
  Sender: FDA-Public Use
  Company Number: 8040724

PATIENT
  Age: 56 Year
  Sex: Female

DRUGS (5)
  1. HYDROCODONE BITARTRATE AND ACETAMINOPHEN [Suspect]
     Dates: end: 20070101
  2. CYCLOBENZAPRINE HCL [Suspect]
     Dates: end: 20070101
  3. LORAZEPAM [Suspect]
     Dates: end: 20070101
  4. IBUPROFEN [Suspect]
     Dates: end: 20070101
  5. ESZOPICLONE [Suspect]
     Dates: end: 20070101

REACTIONS (4)
  - CARDIAC ARREST [None]
  - COMPLETED SUICIDE [None]
  - INTENTIONAL DRUG MISUSE [None]
  - RESPIRATORY ARREST [None]
